FAERS Safety Report 17736000 (Version 1)
Quarter: 2020Q2

REPORT INFORMATION
  Report Type: Spontaneous
  Country: NL (occurrence: NL)
  Receive Date: 20200501
  Receipt Date: 20200501
  Transmission Date: 20200714
  Serious: Yes (Life-Threatening, Other)
  Sender: FDA-Public Use
  Company Number: NL-TEVA-2020-NL-1227949

PATIENT
  Age: 61 Year
  Sex: Female
  Weight: 79.8 kg

DRUGS (4)
  1. METHYLPREDNISOLON [METHYLPREDNISOLONE] [Suspect]
     Active Substance: METHYLPREDNISOLONE
     Indication: ENDOCRINE OPHTHALMOPATHY
     Dosage: 250 MG, 1X PER WEEK?THERAPY END DATE : ASKED BUT UNKNOWN
     Dates: start: 20181008
  2. EUTHYROX (LEVOTHYROXINE) [Concomitant]
     Dosage: TABLET, 50 ?G (MICROGRAM)?THERAPY START DATE AND STOP DATE : ASKED BUT UNKNOWN
  3. ALENDRONINEZUUR/CALCIUMCARBONAAT/COLECALCIFEROL [Concomitant]
     Dosage: TABLET + CHEWABLE TABLET?THERAPY START DATE AND END DATE : ASKED BUT UNKNOWN
  4. DURATEARS Z (OOGZALF) [Concomitant]
     Dosage: THERAPY START DATE AND END DATE : ASKED BUT UNKNOWN

REACTIONS (3)
  - Transaminases increased [Unknown]
  - Liver transplant [Unknown]
  - Hepatic failure [Unknown]

NARRATIVE: CASE EVENT DATE: 20181217
